FAERS Safety Report 9343984 (Version 1)
Quarter: 2013Q2

REPORT INFORMATION
  Report Type: Spontaneous
  Country: US (occurrence: US)
  Receive Date: 20130612
  Receipt Date: 20130612
  Transmission Date: 20140414
  Serious: Yes (Other)
  Sender: FDA-Public Use
  Company Number: US-BAYER-2013-070191

PATIENT
  Age: 42 Year
  Sex: Male
  Weight: 65.76 kg

DRUGS (4)
  1. BAYER GENUINE ASPIRIN ORIGINAL STRENGTH [Suspect]
     Indication: CHEST PAIN
     Dosage: 2 DF, BID
     Route: 048
  2. VICODIN [Concomitant]
     Indication: BACK PAIN
     Dosage: UNK UNK, PRN
  3. VICODIN [Concomitant]
     Indication: BACK PAIN
  4. CLARITIN [Concomitant]

REACTIONS (5)
  - Abdominal pain upper [Not Recovered/Not Resolved]
  - Urticaria [Not Recovered/Not Resolved]
  - Lacrimation increased [Not Recovered/Not Resolved]
  - Ocular hyperaemia [Not Recovered/Not Resolved]
  - Eye swelling [Not Recovered/Not Resolved]
